FAERS Safety Report 5327618-6 (Version None)
Quarter: 2007Q2

REPORT INFORMATION
  Report Type: 
  Country: None (occurrence: None)
  Receive Date: 20070517
  Receipt Date: 20070507
  Transmission Date: 20071010
  Serious: Yes (Disabling)
  Sender: FDA-Public Use
  Company Number: PHBS2007NL07722

PATIENT
  Age: 71 Year
  Sex: Female
  Weight: 75 kg

DRUGS (4)
  1. EXELON [Suspect]
     Indication: DEMENTIA ALZHEIMER'S TYPE
     Route: 065
  2. IRON SUPPLEMENTS [Concomitant]
     Route: 065
  3. REMINYL [Suspect]
     Indication: DEMENTIA ALZHEIMER'S TYPE
     Dosage: 8 MG, QD
     Route: 065
     Dates: start: 20070105, end: 20070223
  4. ACIDUM ACETYLSALICYLICUM [Concomitant]
     Dosage: 80 MG, QD
     Route: 065
     Dates: start: 20051001

REACTIONS (4)
  - BALANCE DISORDER [None]
  - DIZZINESS [None]
  - GAIT DISTURBANCE [None]
  - MENIERE'S DISEASE [None]
